FAERS Safety Report 15153014 (Version 2)
Quarter: 2018Q4

REPORT INFORMATION
  Report Type: Spontaneous
  Country: US (occurrence: US)
  Receive Date: 20180717
  Receipt Date: 20181115
  Transmission Date: 20190204
  Serious: No
  Sender: FDA-Public Use
  Company Number: US-PFIZER INC-2018284163

PATIENT
  Age: 57 Year
  Sex: Female

DRUGS (1)
  1. XELJANZ XR [Suspect]
     Active Substance: TOFACITINIB CITRATE
     Dosage: 11 MG, UNK(X30)(2 WEEK(S))

REACTIONS (4)
  - Sinus congestion [Unknown]
  - Headache [Unknown]
  - Pollakiuria [Unknown]
  - Cough [Unknown]

NARRATIVE: CASE EVENT DATE: 20180628
